FAERS Safety Report 17221976 (Version 1)
Quarter: 2019Q4

REPORT INFORMATION
  Report Type: Spontaneous
  Country: US (occurrence: US)
  Receive Date: 20191209
  Receipt Date: 20191209
  Transmission Date: 20200122
  Serious: No
  Sender: FDA-Public Use
  Company Number: None

PATIENT
  Age: 69 Year
  Sex: Female

DRUGS (1)
  1. RIBAVIRIN TAB 200MG [Suspect]
     Active Substance: RIBAVIRIN
     Dosage: ?          OTHER DOSE:TAKE 2 TABLETS BY ;?
     Route: 048
     Dates: start: 201911

REACTIONS (1)
  - Anaemia [None]

NARRATIVE: CASE EVENT DATE: 20191120
